FAERS Safety Report 11681388 (Version 1)
Quarter: 2015Q4

REPORT INFORMATION
  Report Type: Spontaneous
  Country: US (occurrence: None)
  Receive Date: 20151028
  Receipt Date: 20151028
  Transmission Date: 20160304
  Serious: Yes (Disabling)
  Sender: FDA-Public Use
  Company Number: None

PATIENT
  Age: 56 Year
  Sex: Female
  Weight: 81.65 kg

DRUGS (8)
  1. LISINOPRIL. [Concomitant]
     Active Substance: LISINOPRIL
  2. NORTRIPTYLINE [Concomitant]
     Active Substance: NORTRIPTYLINE
  3. VITAMIN B COMPLEX [Concomitant]
     Active Substance: CYANOCOBALAMIN\DEXPANTHENOL\NIACINAMIDE\PYRIDOXINE HYDROCHLORIDE\RIBOFLAVIN 5^-PHOSPHATE SODIUM\THIAMINE HYDROCHLORIDE\VITAMIN B COMPLEX
  4. NAC [Concomitant]
  5. VITAMIN C [Concomitant]
     Active Substance: ASCORBIC ACID
  6. MAGNESIUM [Concomitant]
     Active Substance: MAGNESIUM
  7. CALTRATE [Concomitant]
     Active Substance: CALCIUM CARBONATE
  8. AVELOX [Suspect]
     Active Substance: MOXIFLOXACIN HYDROCHLORIDE
     Indication: SINUSITIS
     Dates: start: 20120710, end: 20120720

REACTIONS (25)
  - Heart rate increased [None]
  - Paraesthesia [None]
  - Pain in extremity [None]
  - Bladder disorder [None]
  - Gastrointestinal disorder [None]
  - Nausea [None]
  - Muscular weakness [None]
  - Fatigue [None]
  - Balance disorder [None]
  - Dysphagia [None]
  - Back pain [None]
  - Dizziness [None]
  - Hyperhidrosis [None]
  - Joint swelling [None]
  - Arthralgia [None]
  - Tremor [None]
  - Muscle contractions involuntary [None]
  - Depression [None]
  - Feeling abnormal [None]
  - Hypertension [None]
  - Weight decreased [None]
  - Muscle atrophy [None]
  - Joint crepitation [None]
  - Gait disturbance [None]
  - Choking [None]

NARRATIVE: CASE EVENT DATE: 201209
